FAERS Safety Report 10453682 (Version 1)
Quarter: 2014Q3

REPORT INFORMATION
  Report Type: Spontaneous
  Country: US (occurrence: US)
  Receive Date: 20140915
  Receipt Date: 20140915
  Transmission Date: 20150326
  Serious: No
  Sender: FDA-Public Use
  Company Number: US-BRISTOL-MYERS SQUIBB COMPANY-21227178

PATIENT
  Age: 69 Year
  Sex: Female

DRUGS (2)
  1. MULTAQ [Concomitant]
     Active Substance: DRONEDARONE
  2. ELIQUIS [Suspect]
     Active Substance: APIXABAN
     Indication: CEREBROVASCULAR ACCIDENT PROPHYLAXIS

REACTIONS (4)
  - Tremor [Unknown]
  - Vertigo [Unknown]
  - Contusion [Recovered/Resolved]
  - Dizziness [Unknown]
